FAERS Safety Report 8273206-1 (Version None)
Quarter: 2012Q2

REPORT INFORMATION
  Report Type: 
  Country: None (occurrence: None)
  Receive Date: 20120411
  Receipt Date: 20120328
  Transmission Date: 20120825
  Serious: Yes (Hospitalization, Other)
  Sender: FDA-Public Use
  Company Number: JP-CELGENEUS-087-21880-11081323

PATIENT
  Sex: Female

DRUGS (6)
  1. REVLIMID [Suspect]
     Dosage: 10 MILLIGRAM
     Route: 048
     Dates: start: 20101130, end: 20101201
  2. PLATELETS [Concomitant]
     Route: 041
  3. REVLIMID [Suspect]
     Indication: MULTIPLE MYELOMA
     Dosage: 10 MILLIGRAM
     Route: 048
     Dates: start: 20101102, end: 20101103
  4. DEXAMETHASONE [Concomitant]
     Indication: MULTIPLE MYELOMA
     Dosage: 80 MILLIGRAM
     Route: 048
     Dates: start: 20101102, end: 20101103
  5. NEU-UP [Concomitant]
     Indication: TUMOUR LYSIS SYNDROME
     Route: 065
     Dates: start: 20111203
  6. DEXAMETHASONE [Concomitant]
     Dosage: 80 MILLIGRAM
     Route: 048
     Dates: start: 20101130, end: 20101201

REACTIONS (4)
  - TUMOUR LYSIS SYNDROME [None]
  - PLATELET COUNT DECREASED [None]
  - NEUTROPHIL COUNT DECREASED [None]
  - DISSEMINATED INTRAVASCULAR COAGULATION [None]
